FAERS Safety Report 14413318 (Version 1)
Quarter: 2018Q1

REPORT INFORMATION
  Report Type: Spontaneous
  Country: US (occurrence: US)
  Receive Date: 20180119
  Receipt Date: 20180119
  Transmission Date: 20180509
  Serious: Yes (Hospitalization)
  Sender: FDA-Public Use
  Company Number: None

PATIENT
  Age: 43 Year
  Sex: Male
  Weight: 74 kg

DRUGS (10)
  1. NEOSTIGME [Concomitant]
  2. LACTATED RINGERS SOLUTION [Concomitant]
     Active Substance: CALCIUM CHLORIDE\POTASSIUM CHLORIDE\SODIUM CHLORIDE\SODIUM LACTATE
  3. MIDAZOLAM [Concomitant]
     Active Substance: MIDAZOLAM HYDROCHLORIDE
  4. PROPOFOL. [Concomitant]
     Active Substance: PROPOFOL
  5. SUCCINYLCHOLINE [Suspect]
     Active Substance: SUCCINYLCHOLINE
     Indication: SURGERY
     Dosage: RECENT
     Route: 042
  6. ROCURONIUM [Suspect]
     Active Substance: ROCURONIUM BROMIDE
     Indication: SURGERY
     Dosage: RECENT
     Route: 042
  7. ZOFRAN [Concomitant]
     Active Substance: ONDANSETRON HYDROCHLORIDE
  8. FENTANYL. [Concomitant]
     Active Substance: FENTANYL
  9. LIDOCAINE. [Concomitant]
     Active Substance: LIDOCAINE
  10. ROBINUL [Concomitant]
     Active Substance: GLYCOPYRROLATE

REACTIONS (4)
  - Disease complication [None]
  - Anaesthetic complication [None]
  - Pseudocholinesterase deficiency [None]
  - Drug intolerance [None]

NARRATIVE: CASE EVENT DATE: 20171117
